FAERS Safety Report 14621254 (Version 1)
Quarter: 2018Q1

REPORT INFORMATION
  Report Type: Spontaneous
  Country: US (occurrence: US)
  Receive Date: 20180310
  Receipt Date: 20180310
  Transmission Date: 20180509
  Serious: No
  Sender: FDA-Public Use
  Company Number: US-009507513-1802USA005240

PATIENT
  Age: 30 Year
  Sex: Female

DRUGS (5)
  1. NORVIR [Suspect]
     Active Substance: RITONAVIR
     Indication: HIV INFECTION
     Dosage: 100 MG, QD (1 IN 1 D), SECOND TRIMESTER EXPOSURE
     Route: 048
     Dates: start: 20170621
  2. TRUVADA [Suspect]
     Active Substance: EMTRICITABINE\TENOFOVIR DISOPROXIL FUMARATE
     Indication: HIV INFECTION
     Dosage: 500 MG, QD (1 IN 1 D), SECOND TRIMESTER EXPOSURE
     Route: 048
     Dates: start: 20170621
  3. COCAINE [Suspect]
     Active Substance: COCAINE
     Indication: PRODUCT USED FOR UNKNOWN INDICATION
     Route: 065
  4. ISENTRESS [Suspect]
     Active Substance: RALTEGRAVIR POTASSIUM
     Indication: HIV INFECTION
     Dosage: 800 MG, QD (1 IN 1 D), THIRD TRIMESTER EXPOSURE
     Route: 048
     Dates: start: 20170828
  5. PREZISTA [Suspect]
     Active Substance: DARUNAVIR ETHANOLATE
     Indication: HIV INFECTION
     Dosage: SECOND TRIMESTER EXPOSURE (1 IN 1 D)
     Route: 048
     Dates: start: 20170621

REACTIONS (1)
  - Maternal exposure before pregnancy [Recovered/Resolved]
